FAERS Safety Report 4805910-9 (Version None)
Quarter: 2005Q4

REPORT INFORMATION
  Report Type: 
  Country: None (occurrence: None)
  Receive Date: 20051018
  Receipt Date: 20051003
  Transmission Date: 20060501
  Serious: Yes (Other)
  Sender: FDA-Public Use
  Company Number: 2005PV002804

PATIENT
  Age: 61 Year
  Sex: Female
  Weight: 107.0489 kg

DRUGS (6)
  1. BYETTA [Suspect]
     Dosage: SEE IMAGE
     Route: 058
     Dates: start: 20050801, end: 20050101
  2. BYETTA [Suspect]
     Dosage: SEE IMAGE
     Route: 058
     Dates: start: 20050101
  3. NORVASC [Concomitant]
  4. SYNTHROID [Concomitant]
  5. EFFEXOR [Concomitant]
  6. PREMARIN [Concomitant]

REACTIONS (2)
  - NAUSEA [None]
  - PANCREATITIS [None]
